FAERS Safety Report 10430318 (Version 1)
Quarter: 2014Q3

REPORT INFORMATION
  Report Type: Other
  Country: GB (occurrence: GB)
  Receive Date: 20140904
  Receipt Date: 20140904
  Transmission Date: 20150326
  Serious: Yes (Disabling)
  Sender: FDA-Public Use
  Company Number: GB-PERRIGO-14GB008542

PATIENT
  Age: 16 Year
  Sex: Male
  Weight: 69.9 kg

DRUGS (1)
  1. CETIRIZINE HYDROCHLORIDE 16208/0067 10 MG [Suspect]
     Active Substance: CETIRIZINE HYDROCHLORIDE
     Indication: SEASONAL ALLERGY
     Dosage: UNK
     Route: 048
     Dates: start: 201405, end: 201408

REACTIONS (2)
  - Lethargy [Recovered/Resolved]
  - Depressed mood [Recovered/Resolved]

NARRATIVE: CASE EVENT DATE: 201405
